FAERS Safety Report 9742721 (Version 1)
Quarter: 2013Q4

REPORT INFORMATION
  Report Type: Spontaneous
  Country: US (occurrence: US)
  Receive Date: 20131210
  Receipt Date: 20131210
  Transmission Date: 20140711
  Serious: No
  Sender: FDA-Public Use
  Company Number: US-GILEAD-2009-0025745

PATIENT
  Age: 48 Year
  Sex: Female

DRUGS (7)
  1. LETAIRIS [Suspect]
     Indication: COR PULMONALE CHRONIC
     Route: 048
     Dates: start: 20081031
  2. REVATIO [Concomitant]
  3. WARFARIN [Concomitant]
  4. HCTZ [Concomitant]
  5. LEVOXYL [Concomitant]
  6. IRON [Concomitant]
  7. MVI [Concomitant]

REACTIONS (2)
  - Dry eye [Recovered/Resolved]
  - Nasal congestion [Recovered/Resolved]
